FAERS Safety Report 18448171 (Version 1)
Quarter: 2020Q4

REPORT INFORMATION
  Report Type: Spontaneous
  Country: RU (occurrence: RU)
  Receive Date: 20201030
  Receipt Date: 20201030
  Transmission Date: 20210114
  Serious: Yes (Other)
  Sender: FDA-Public Use
  Company Number: RU-ASTRAZENECA-2020SF40701

PATIENT
  Age: 1 Year
  Sex: Female

DRUGS (3)
  1. EXPECTORANTS [Concomitant]
  2. PULMICORT TURBUHALER [Suspect]
     Active Substance: BUDESONIDE
     Indication: VIRAL INFECTION
     Route: 055
  3. PULMICORT TURBUHALER [Suspect]
     Active Substance: BUDESONIDE
     Indication: VIRAL INFECTION
     Route: 055

REACTIONS (2)
  - COVID-19 [Unknown]
  - Off label use [Unknown]
